FAERS Safety Report 8062679-5 (Version None)
Quarter: 2012Q1

REPORT INFORMATION
  Report Type: 
  Country: None (occurrence: None)
  Receive Date: 20120106
  Receipt Date: 20111222
  Transmission Date: 20120608
  Serious: Yes (Other)
  Sender: FDA-Public Use
  Company Number: 2011030634

PATIENT
  Sex: Male

DRUGS (1)
  1. PRIVIGEN [Suspect]
     Indication: CHRONIC INFLAMMATORY DEMYELINATING POLYRADICULONEUROPATHY
     Dosage: (60 G 1X/5 WEEKS, EVERY 5-6 WEEKS)

REACTIONS (1)
  - NO THERAPEUTIC RESPONSE [None]
